FAERS Safety Report 12881594 (Version 1)
Quarter: 2016Q4

REPORT INFORMATION
  Report Type: Spontaneous
  Country: US (occurrence: US)
  Receive Date: 20161025
  Receipt Date: 20161025
  Transmission Date: 20170207
  Serious: No
  Sender: FDA-Public Use
  Company Number: US-JNJFOC-20160913700

PATIENT
  Age: 48 Year
  Sex: Female

DRUGS (1)
  1. TOPAMAX [Suspect]
     Active Substance: TOPIRAMATE
     Indication: DIABETIC NEUROPATHY
     Dosage: 25-50 MG AT NIGHT
     Route: 048
     Dates: start: 201410

REACTIONS (6)
  - Therapy cessation [Unknown]
  - Hyperglycaemia [Not Recovered/Not Resolved]
  - Product use issue [Unknown]
  - Cognitive disorder [Recovered/Resolved]
  - Off label use [Unknown]
  - Hypoglycaemia [Not Recovered/Not Resolved]

NARRATIVE: CASE EVENT DATE: 201410
